FAERS Safety Report 14714563 (Version 2)
Quarter: 2018Q3

REPORT INFORMATION
  Report Type: Spontaneous
  Country: DE (occurrence: DE)
  Receive Date: 20180404
  Receipt Date: 20180803
  Transmission Date: 20181010
  Serious: Yes (Life-Threatening, Hospitalization, Other)
  Sender: FDA-Public Use
  Company Number: DE-MYLANLABS-2018M1020368

PATIENT
  Age: 83 Year
  Sex: Female
  Weight: 60 kg

DRUGS (5)
  1. SAXAGLIPTIN [Interacting]
     Active Substance: SAXAGLIPTIN
     Indication: TYPE 2 DIABETES MELLITUS
     Dosage: 5 MG, UNK
  2. RAMIPRIL. [Suspect]
     Active Substance: RAMIPRIL
     Indication: CORONARY ARTERY DISEASE
  3. RAMIPRIL. [Interacting]
     Active Substance: RAMIPRIL
     Indication: HYPERTENSION
     Dosage: 5 MG, UNK
     Route: 048
  4. RAMIPRIL. [Suspect]
     Active Substance: RAMIPRIL
     Indication: HYPERTENSION
     Dosage: 5 MG, UNK
     Route: 048
  5. RAMIPRIL. [Interacting]
     Active Substance: RAMIPRIL
     Indication: CORONARY ARTERY DISEASE

REACTIONS (4)
  - Angioedema [Recovered/Resolved]
  - Drug interaction [Recovered/Resolved]
  - Condition aggravated [Recovered/Resolved]
  - Swollen tongue [Recovered/Resolved]
